FAERS Safety Report 14368572 (Version 1)
Quarter: 2018Q1

REPORT INFORMATION
  Report Type: Spontaneous
  Country: US (occurrence: US)
  Receive Date: 20180109
  Receipt Date: 20180109
  Transmission Date: 20180509
  Serious: No
  Sender: FDA-Public Use
  Company Number: US-ELI_LILLY_AND_COMPANY-US201712010647

PATIENT
  Age: 40 Year
  Sex: Female

DRUGS (7)
  1. CYMBALTA [Suspect]
     Active Substance: DULOXETINE HYDROCHLORIDE
     Indication: ANXIETY
     Dosage: 60 MG, DAILY
     Route: 048
     Dates: start: 201710
  2. CYMBALTA [Suspect]
     Active Substance: DULOXETINE HYDROCHLORIDE
     Dosage: 120 MG, DAILY
     Route: 048
     Dates: start: 201712
  3. LIRICA [Suspect]
     Active Substance: PREGABALIN
     Indication: PRODUCT USED FOR UNKNOWN INDICATION
     Dosage: UNK, UNKNOWN
     Route: 065
  4. CYMBALTA [Suspect]
     Active Substance: DULOXETINE HYDROCHLORIDE
     Indication: DEPRESSION
     Dosage: 15 MG, DAILY
     Route: 065
  5. LATUDA [Suspect]
     Active Substance: LURASIDONE HYDROCHLORIDE
     Indication: PRODUCT USED FOR UNKNOWN INDICATION
     Dosage: UNK, UNKNOWN
  6. CYMBALTA [Suspect]
     Active Substance: DULOXETINE HYDROCHLORIDE
     Indication: FIBROMYALGIA
     Dosage: 60 MG, UNKNOWN
     Route: 065
     Dates: start: 2012
  7. WELLBUTRIN [Concomitant]
     Active Substance: BUPROPION HYDROCHLORIDE
     Indication: PRODUCT USED FOR UNKNOWN INDICATION

REACTIONS (6)
  - Weight increased [Recovered/Resolved]
  - Blood thyroid stimulating hormone increased [Unknown]
  - Pain [Unknown]
  - Drug ineffective [Not Recovered/Not Resolved]
  - Increased appetite [Unknown]
  - Loss of consciousness [Recovered/Resolved]

NARRATIVE: CASE EVENT DATE: 201711
